FAERS Safety Report 21602502 (Version 4)
Quarter: 2023Q1

REPORT INFORMATION
  Report Type: Spontaneous
  Country: DE (occurrence: DE)
  Receive Date: 20221116
  Receipt Date: 20230110
  Transmission Date: 20230417
  Serious: Yes (Other)
  Sender: FDA-Public Use
  Company Number: DE-MYLANLABS-2022M1125292

PATIENT
  Age: 84 Year
  Sex: Male
  Weight: 70 kg

DRUGS (4)
  1. FLUOROURACIL [Suspect]
     Active Substance: FLUOROURACIL
     Indication: Actinic keratosis
     Dosage: UNK
     Route: 061
     Dates: start: 20221015, end: 20221027
  2. FLUOROURACIL [Suspect]
     Active Substance: FLUOROURACIL
     Dosage: BID (2X DAILY)
     Route: 061
     Dates: start: 20221015, end: 20221017
  3. FLUOROURACIL [Suspect]
     Active Substance: FLUOROURACIL
     Dosage: BID (2X DAILY)
     Route: 061
     Dates: start: 20221021, end: 20221021
  4. FLUOROURACIL [Suspect]
     Active Substance: FLUOROURACIL
     Dosage: BID (2X DAILY)
     Route: 061
     Dates: start: 20221023, end: 20221027

REACTIONS (10)
  - Neck pain [Recovering/Resolving]
  - Arthralgia [Unknown]
  - Pain in extremity [Recovering/Resolving]
  - Rhabdomyolysis [Unknown]
  - Musculoskeletal stiffness [Recovering/Resolving]
  - Joint swelling [Not Recovered/Not Resolved]
  - Chest pain [Recovering/Resolving]
  - Myalgia [Not Recovered/Not Resolved]
  - Asthenia [Not Recovered/Not Resolved]
  - Mobility decreased [Not Recovered/Not Resolved]

NARRATIVE: CASE EVENT DATE: 20221021
